FAERS Safety Report 23779878 (Version 2)
Quarter: 2024Q2

REPORT INFORMATION
  Report Type: Spontaneous
  Country: JP (occurrence: JP)
  Receive Date: 20240424
  Receipt Date: 20240516
  Transmission Date: 20240716
  Serious: Yes (Hospitalization, Other)
  Sender: FDA-Public Use
  Company Number: JP-PFIZER INC-PV202400053793

PATIENT
  Age: 36 Year
  Sex: Female
  Weight: 44.1 kg

DRUGS (1)
  1. CIBINQO [Suspect]
     Active Substance: ABROCITINIB
     Indication: Dermatitis atopic
     Dosage: 100 MG ONCE A DAY
     Route: 048
     Dates: start: 20230906, end: 20240415

REACTIONS (1)
  - Eczema herpeticum [Recovering/Resolving]

NARRATIVE: CASE EVENT DATE: 20240412
